FAERS Safety Report 5087280-7 (Version None)
Quarter: 2006Q3

REPORT INFORMATION
  Report Type: 
  Country: None (occurrence: None)
  Receive Date: 20060801
  Receipt Date: 20050603
  Transmission Date: 20061208
  Serious: Yes (Hospitalization)
  Sender: FDA-Public Use
  Company Number: OMPQ-PR-0503S-0516

PATIENT
  Age: 47 Year
  Sex: Male

DRUGS (1)
  1. OMNIPAQUE 140 [Suspect]
     Indication: SURGERY
     Dosage: 17 ML, SINGLE DOSE, I.T.
     Route: 042
     Dates: start: 20050301, end: 20050301

REACTIONS (2)
  - CLOSTRIDIUM COLITIS [None]
  - MENINGITIS BACTERIAL [None]
